FAERS Safety Report 5838132-3 (Version None)
Quarter: 2008Q3

REPORT INFORMATION
  Report Type: 
  Country: None (occurrence: None)
  Receive Date: 20080808
  Receipt Date: 20080801
  Transmission Date: 20090109
  Serious: Yes (Hospitalization)
  Sender: FDA-Public Use
  Company Number: FR-JNJFOC-20080700873

PATIENT
  Age: 84 Year
  Sex: Female

DRUGS (7)
  1. REMINYL LP [Suspect]
     Indication: DRUG USE FOR UNKNOWN INDICATION
     Route: 048
  2. ZYPREXA [Suspect]
     Indication: DRUG USE FOR UNKNOWN INDICATION
     Route: 048
  3. OROCAL D3 [Concomitant]
  4. CETORNAN [Concomitant]
  5. DAFALGAN [Concomitant]
  6. DEXERYL [Concomitant]
  7. ASPIRIN [Concomitant]

REACTIONS (1)
  - LOSS OF CONSCIOUSNESS [None]
